FAERS Safety Report 12142308 (Version 1)
Quarter: 2016Q1

REPORT INFORMATION
  Report Type: Spontaneous
  Country: PE (occurrence: PE)
  Receive Date: 20160303
  Receipt Date: 20160303
  Transmission Date: 20160526
  Serious: Yes (Hospitalization, Other)
  Sender: FDA-Public Use
  Company Number: PE-009507513-1603PER001938

PATIENT
  Age: 64 Year
  Sex: Male

DRUGS (1)
  1. JANUVIA [Suspect]
     Active Substance: SITAGLIPTIN PHOSPHATE
     Dosage: 100 MG, QD
     Route: 048
     Dates: end: 201602

REACTIONS (1)
  - Cardiac operation [Recovered/Resolved with Sequelae]

NARRATIVE: CASE EVENT DATE: 201602
